FAERS Safety Report 19210309 (Version 2)
Quarter: 2021Q2

REPORT INFORMATION
  Report Type: Spontaneous
  Country: US (occurrence: US)
  Receive Date: 20210504
  Receipt Date: 20210514
  Transmission Date: 20210717
  Serious: No
  Sender: FDA-Public Use
  Company Number: US-AMGEN-USASP2021066247

PATIENT
  Age: 66 Year
  Sex: Male

DRUGS (9)
  1. METHYLPRED [Concomitant]
     Active Substance: METHYLPREDNISOLONE
  2. OXYCODONE AND ACETAMINOPHEN [Concomitant]
     Active Substance: ACETAMINOPHEN\OXYCODONE HYDROCHLORIDE
  3. OTEZLA [Suspect]
     Active Substance: APREMILAST
     Indication: PRODUCT USED FOR UNKNOWN INDICATION
     Dosage: 30 MILLIGRAM, BID
     Route: 048
     Dates: start: 20210402
  4. BETAMETH [BETAMETHASONE VALERATE] [Concomitant]
  5. CLINDAMYCIN. [Concomitant]
     Active Substance: CLINDAMYCIN
  6. ALPRAZOLAM. [Concomitant]
     Active Substance: ALPRAZOLAM
  7. HUMIRA [Concomitant]
     Active Substance: ADALIMUMAB
  8. CEPHALEXIN [CEFALEXIN] [Concomitant]
     Active Substance: CEPHALEXIN
  9. PREDNISONE. [Concomitant]
     Active Substance: PREDNISONE

REACTIONS (2)
  - Arthralgia [Not Recovered/Not Resolved]
  - Condition aggravated [Not Recovered/Not Resolved]

NARRATIVE: CASE EVENT DATE: 202104
